FAERS Safety Report 10273986 (Version 1)
Quarter: 2014Q1

REPORT INFORMATION
  Report Type: Spontaneous
  Country: US (occurrence: None)
  Receive Date: 20140306
  Receipt Date: 20140306
  Transmission Date: 20141002
  Serious: Yes (Other)
  Sender: FDA-Public Use
  Company Number: 163-21880-13121099

PATIENT
  Age: 52 Year
  Sex: Female
  Weight: 60.3 kg

DRUGS (7)
  1. REVLIMID [Suspect]
     Indication: PLASMA CELL MYELOMA
     Dosage: M, W AND F AS DIRECTED, PO
     Route: 048
     Dates: start: 201108
  2. AMOX TR-K CLV (TABLETS) [Concomitant]
  3. OXYCODONE-ACETAMINOPHEN (OXYCOCET) [Concomitant]
  4. ENOXAPARIN (ENOXAPARIN) [Concomitant]
  5. DEXAMETHASONE (DEXAMETHASONE) (TABLETS) [Concomitant]
  6. ASPIRIN ADULT (ACETYLSALICYILIC ACID) (CHEWABLE TABLET) [Concomitant]
  7. VELCADE (BORTEZOMIB) [Concomitant]

REACTIONS (1)
  - Tooth disorder [None]
